FAERS Safety Report 7793759-7 (Version None)
Quarter: 2011Q4

REPORT INFORMATION
  Report Type: 
  Country: None (occurrence: None)
  Receive Date: 20111003
  Receipt Date: 20110920
  Transmission Date: 20120403
  Serious: Yes (Other)
  Sender: FDA-Public Use
  Company Number: GB-MYLANLABS-2011S1019554

PATIENT
  Age: 21 Year
  Sex: Female

DRUGS (3)
  1. LAMOTRIGINE [Concomitant]
     Indication: PRODUCT USED FOR UNKNOWN INDICATION
  2. CETIRIZINE HCL [Suspect]
     Indication: HYPERSENSITIVITY
     Route: 048
     Dates: start: 20061116, end: 20110505
  3. CETIRIZINE HCL [Suspect]
     Indication: SWELLING
     Route: 048
     Dates: start: 20061116, end: 20110505

REACTIONS (1)
  - EPILEPSY [None]
